FAERS Safety Report 18908318 (Version 1)
Quarter: 2021Q1

REPORT INFORMATION
  Report Type: Spontaneous
  Country: US (occurrence: US)
  Receive Date: 20210218
  Receipt Date: 20210218
  Transmission Date: 20210420
  Serious: No
  Sender: FDA-Public Use
  Company Number: US-AUROBINDO-AUR-APL-2020-063414

PATIENT
  Sex: Female

DRUGS (1)
  1. PROGESTERONE CAPSULES 100 MG [Suspect]
     Active Substance: PROGESTERONE
     Indication: PRODUCT USED FOR UNKNOWN INDICATION
     Dosage: 1 DOSAGE FORM, ONCE A DAY
     Route: 048
     Dates: start: 20201212

REACTIONS (1)
  - Rash [Unknown]

NARRATIVE: CASE EVENT DATE: 20201212
